FAERS Safety Report 10040152 (Version 2)
Quarter: 2014Q1

REPORT INFORMATION
  Report Type: Spontaneous
  Country: US (occurrence: US)
  Receive Date: 20140326
  Receipt Date: 20140326
  Transmission Date: 20141002
  Serious: Yes (Disabling)
  Sender: FDA-Public Use
  Company Number: US-GE HEALTHCARE MEDICAL DIAGNOSTICS-OSCN-PR-0710S-0427

PATIENT
  Sex: Male

DRUGS (8)
  1. GADOLINIUM (UNSPECIFIED) [Suspect]
     Indication: PRODUCT USED FOR UNKNOWN INDICATION
     Route: 042
     Dates: start: 20000908, end: 20000908
  2. MAGNEVIST [Suspect]
     Indication: RENAL CYST
     Route: 042
     Dates: start: 19970822, end: 19970822
  3. MAGNEVIST [Suspect]
     Indication: HYPERPARATHYROIDISM
     Route: 042
     Dates: start: 19980611, end: 19980611
  4. MAGNEVIST [Suspect]
     Indication: PRODUCT USED FOR UNKNOWN INDICATION
     Route: 042
     Dates: start: 20000912, end: 20000912
  5. MAGNEVIST [Suspect]
     Indication: DIPLOPIA
     Route: 042
     Dates: start: 20010214, end: 20010214
  6. MAGNEVIST [Suspect]
     Indication: RENAL TRANSPLANT
     Route: 042
     Dates: start: 20030729, end: 20030729
  7. EPOGEN [Concomitant]
  8. PROCRIT [Concomitant]

REACTIONS (1)
  - Nephrogenic systemic fibrosis [Not Recovered/Not Resolved]
